FAERS Safety Report 6925472-X (Version None)
Quarter: 2010Q3

REPORT INFORMATION
  Report Type: 
  Country: None (occurrence: None)
  Receive Date: 20100816
  Receipt Date: 20100806
  Transmission Date: 20110219
  Serious: No
  Sender: FDA-Public Use
  Company Number: US-PFIZER INC-2010099797

PATIENT
  Sex: Male

DRUGS (4)
  1. VIAGRA [Suspect]
     Dosage: 100 MG, UNK
  2. CIALIS [Suspect]
     Dosage: 2 MG, UNK
  3. CIALIS [Suspect]
     Dosage: 5 MG, UNK
  4. CIALIS [Suspect]
     Dosage: UNK, DAILY DOSE

REACTIONS (1)
  - DRUG INEFFECTIVE [None]
